FAERS Safety Report 25389330 (Version 3)
Quarter: 2025Q3

REPORT INFORMATION
  Report Type: Spontaneous
  Country: EU (occurrence: EU)
  Receive Date: 20250603
  Receipt Date: 20250711
  Transmission Date: 20251020
  Serious: Yes (Other)
  Sender: ABBVIE
  Company Number: EU-ABBVIE-6302512

PATIENT
  Age: 36 Year
  Sex: Female

DRUGS (3)
  1. UPADACITINIB [Suspect]
     Active Substance: UPADACITINIB
     Indication: Psoriatic arthropathy
     Route: 048
     Dates: start: 20240403
  2. HUMAN PAPILLOMAVIRUS VACCINE [Concomitant]
     Active Substance: HUMAN PAPILLOMAVIRUS VACCINE
     Indication: Human papilloma virus immunisation
  3. SULFASALAZINE [Concomitant]
     Active Substance: SULFASALAZINE
     Indication: Product used for unknown indication
     Route: 048
     Dates: start: 202104

REACTIONS (5)
  - Cervical dysplasia [Unknown]
  - Papilloma viral infection [Unknown]
  - Condition aggravated [Unknown]
  - Drug ineffective [Unknown]
  - Drug intolerance [Unknown]

NARRATIVE: CASE EVENT DATE: 20241025
